FAERS Safety Report 9437197 (Version 1)
Quarter: 2013Q3

REPORT INFORMATION
  Report Type: Spontaneous
  Country: DE (occurrence: DE)
  Receive Date: 20130802
  Receipt Date: 20130802
  Transmission Date: 20140515
  Serious: Yes (Hospitalization)
  Sender: FDA-Public Use
  Company Number: PHHY2013DE081983

PATIENT
  Sex: Male

DRUGS (3)
  1. EXELON [Suspect]
     Dosage: 1.5 MG, BID
     Route: 048
     Dates: start: 201307, end: 201307
  2. EXELON [Suspect]
     Dosage: 3 MG, BID
     Route: 048
     Dates: start: 201307, end: 201307
  3. EXELON [Suspect]
     Dosage: 3 MG, QD
     Route: 048
     Dates: start: 201307

REACTIONS (2)
  - Speech disorder [Unknown]
  - Hypokinesia [Unknown]
